FAERS Safety Report 12455021 (Version 1)
Quarter: 2016Q2

REPORT INFORMATION
  Report Type: Spontaneous
  Country: US (occurrence: US)
  Receive Date: 20160610
  Receipt Date: 20160610
  Transmission Date: 20160815
  Serious: No
  Sender: FDA-Public Use
  Company Number: US-PFIZER INC-2016288752

PATIENT
  Age: 23 Year
  Sex: Female
  Weight: 45 kg

DRUGS (1)
  1. SERTRALINE HCL [Suspect]
     Active Substance: SERTRALINE HYDROCHLORIDE
     Indication: ANXIETY
     Dosage: 25 MG, 1X/DAY
     Route: 048
     Dates: start: 20160413

REACTIONS (4)
  - Drug ineffective [Unknown]
  - Panic attack [Unknown]
  - Nausea [Recovered/Resolved]
  - Frequent bowel movements [Unknown]

NARRATIVE: CASE EVENT DATE: 201605
